FAERS Safety Report 5878975-3 (Version None)
Quarter: 2008Q3

REPORT INFORMATION
  Report Type: 
  Country: None (occurrence: None)
  Receive Date: 20080912
  Receipt Date: 20080910
  Transmission Date: 20090109
  Serious: Yes (Life-Threatening, Hospitalization)
  Sender: FDA-Public Use
  Company Number: JP-BRISTOL-MYERS SQUIBB COMPANY-14237739

PATIENT
  Age: 58 Year
  Sex: Male

DRUGS (6)
  1. MITOMYCIN [Suspect]
     Indication: HEPATIC CANCER METASTATIC
     Route: 013
     Dates: start: 20051118, end: 20060213
  2. MITOMYCIN [Suspect]
     Indication: GASTRIC CANCER
     Route: 013
     Dates: start: 20051118, end: 20060213
  3. BRIPLATIN [Concomitant]
     Indication: HEPATIC CANCER METASTATIC
     Dosage: HAD ALSO RECEIVED FROM AUG-2003 TO MAR-2004 AND AUG-2004 TO NOV-2004 WITHOUT ADVERSE REACTIONS.
     Route: 013
     Dates: start: 20051118, end: 20060213
  4. OMEPRAZOLE [Concomitant]
     Route: 048
     Dates: start: 20040127, end: 20061121
  5. GANATON [Concomitant]
     Route: 048
     Dates: start: 20040511, end: 20061121
  6. NAIXAN [Concomitant]
     Route: 048
     Dates: start: 20051108, end: 20061121

REACTIONS (3)
  - ACUTE MYOCARDIAL INFARCTION [None]
  - PRINZMETAL ANGINA [None]
  - PULMONARY INFARCTION [None]
